FAERS Safety Report 8500540-X (Version None)
Quarter: 2012Q3

REPORT INFORMATION
  Report Type: 
  Country: None (occurrence: None)
  Receive Date: 20120710
  Receipt Date: 20120627
  Transmission Date: 20120928
  Serious: No
  Sender: FDA-Public Use
  Company Number: US-ASTRAZENECA-2012SE43344

PATIENT
  Sex: Female

DRUGS (1)
  1. DUTOPROL [Suspect]
     Route: 048

REACTIONS (1)
  - DEHYDRATION [None]
